FAERS Safety Report 7467198-2 (Version None)
Quarter: 2011Q2

REPORT INFORMATION
  Report Type: 
  Country: None (occurrence: None)
  Receive Date: 20110509
  Receipt Date: 20101111
  Transmission Date: 20111010
  Serious: No
  Sender: FDA-Public Use
  Company Number: US-ALEXION-A201001457

PATIENT

DRUGS (8)
  1. SOLIRIS [Suspect]
     Indication: PAROXYSMAL NOCTURNAL HAEMOGLOBINURIA
     Dosage: 600 MG, QW
     Dates: start: 20090217, end: 20090301
  2. ALLOPURINOL [Suspect]
     Indication: GOUT
     Dosage: UNK
  3. VITAMIN C                          /00008001/ [Concomitant]
     Dosage: 1000 MG, QD
  4. CALCIUM W/VITAMIN D                /00188401/ [Suspect]
  5. ASPIRIN [Concomitant]
     Dosage: 81 MG, QD
     Route: 048
  6. SOTALOL HCL [Concomitant]
     Dosage: 80 MG, BID
     Route: 048
  7. FOLIC ACID [Concomitant]
     Dosage: UNK, QD
     Route: 048
  8. SOLIRIS [Suspect]
     Dosage: 900 MG, Q2W
     Route: 042
     Dates: start: 20090324

REACTIONS (9)
  - BLOOD LACTATE DEHYDROGENASE INCREASED [None]
  - NEUTROPENIA [None]
  - PAIN IN EXTREMITY [None]
  - FATIGUE [None]
  - HAEMATOCRIT DECREASED [None]
  - GOUT [None]
  - HAEMOGLOBIN DECREASED [None]
  - OEDEMA PERIPHERAL [None]
  - ARTHRITIS [None]
